FAERS Safety Report 5155444-X (Version None)
Quarter: 2006Q4

REPORT INFORMATION
  Report Type: 
  Country: None (occurrence: None)
  Receive Date: 20061114
  Receipt Date: 20061101
  Transmission Date: 20070319
  Serious: Yes (Other)
  Sender: FDA-Public Use
  Company Number: 2006135659

PATIENT
  Age: 57 Year
  Sex: Male
  Weight: 100.2449 kg

DRUGS (6)
  1. CHANTIX [Suspect]
     Indication: SMOKING CESSATION THERAPY
     Dates: start: 20061027
  2. NEURONTIN [Concomitant]
  3. AVANDIA [Concomitant]
  4. GLUCOPHAGE [Concomitant]
  5. LOPID [Concomitant]
  6. AMARYL [Concomitant]

REACTIONS (2)
  - CONDITION AGGRAVATED [None]
  - GALLBLADDER DISORDER [None]
